FAERS Safety Report 7021383-2 (Version None)
Quarter: 2010Q3

REPORT INFORMATION
  Report Type: 
  Country: None (occurrence: None)
  Receive Date: 20100929
  Receipt Date: 20100920
  Transmission Date: 20110219
  Serious: Yes (Hospitalization)
  Sender: FDA-Public Use
  Company Number: DE-ABBOTT-10P-062-0667885-00

PATIENT
  Sex: Female
  Weight: 88 kg

DRUGS (5)
  1. HUMIRA [Suspect]
     Indication: ANKYLOSING SPONDYLITIS
     Route: 058
     Dates: start: 20100101, end: 20100701
  2. NOVALGIN [Concomitant]
     Indication: ANKYLOSING SPONDYLITIS
     Dosage: 1000 MG DAILY
  3. PREDNISOLONE [Concomitant]
     Indication: ANKYLOSING SPONDYLITIS
     Dosage: 7.5 MG OD
     Route: 048
  4. NICOTIN PLASTER [Concomitant]
     Indication: SMOKING CESSATION THERAPY
     Dosage: 52.5 MG OD
     Route: 062
     Dates: start: 20100801
  5. CALCIVIT D [Concomitant]
     Indication: PRODUCT USED FOR UNKNOWN INDICATION
     Dosage: 1 TAB BID
     Route: 048

REACTIONS (5)
  - INTESTINAL FISTULA [None]
  - ORAL CANDIDIASIS [None]
  - PATHOGEN RESISTANCE [None]
  - STAPHYLOCOCCAL INFECTION [None]
  - WOUND DEHISCENCE [None]
